FAERS Safety Report 6251071-1 (Version None)
Quarter: 2009Q2

REPORT INFORMATION
  Report Type: 
  Country: None (occurrence: None)
  Receive Date: 20090630
  Receipt Date: 20090619
  Transmission Date: 20091009
  Serious: Yes (Other)
  Sender: FDA-Public Use
  Company Number: US-ABBOTT-07P-163-0367265-00

PATIENT
  Sex: Female
  Weight: 81.6 kg

DRUGS (11)
  1. DEPAKOTE [Suspect]
     Indication: DEPRESSION
  2. HALDOL [Suspect]
     Indication: SCHIZOAFFECTIVE DISORDER
     Route: 050
  3. HALDOL [Suspect]
     Indication: BIPOLAR DISORDER
     Route: 050
  4. LIQUID LITHIUM [Suspect]
     Indication: DRUG USE FOR UNKNOWN INDICATION
  5. HALYADAL [Suspect]
     Indication: DRUG USE FOR UNKNOWN INDICATION
  6. DEPO-PROVERA [Suspect]
     Indication: CONTRACEPTION
  7. LEVOXYL [Suspect]
     Indication: DRUG USE FOR UNKNOWN INDICATION
  8. INDERAL [Concomitant]
     Indication: DRUG USE FOR UNKNOWN INDICATION
  9. ATIVAN [Concomitant]
     Indication: DRUG USE FOR UNKNOWN INDICATION
  10. ZYPREXA [Concomitant]
     Indication: DRUG USE FOR UNKNOWN INDICATION
  11. BENADRYL [Concomitant]
     Indication: DRUG USE FOR UNKNOWN INDICATION

REACTIONS (15)
  - ABNORMAL BEHAVIOUR [None]
  - BLOOD URINE PRESENT [None]
  - CARDIAC DISORDER [None]
  - CARDIOVASCULAR DISORDER [None]
  - DYSPNOEA [None]
  - EXTRAPYRAMIDAL DISORDER [None]
  - GAIT DISTURBANCE [None]
  - HAEMATOCHEZIA [None]
  - HAEMORRHAGE [None]
  - MALAISE [None]
  - MUSCLE RIGIDITY [None]
  - MUSCULOSKELETAL STIFFNESS [None]
  - RESTLESSNESS [None]
  - VOMITING [None]
  - WEIGHT INCREASED [None]
